FAERS Safety Report 4392261-2 (Version None)
Quarter: 2004Q3

REPORT INFORMATION
  Report Type: 
  Country: None (occurrence: None)
  Receive Date: 20040702
  Receipt Date: 20040303
  Transmission Date: 20050211
  Serious: Yes (Other)
  Sender: FDA-Public Use
  Company Number: 2004UW02928

PATIENT
  Age: 56 Year
  Sex: Female
  Weight: 68.0396 kg

DRUGS (14)
  1. CRESTOR [Suspect]
     Indication: HYPERCHOLESTEROLAEMIA
     Dosage: 10 MG QD PO
     Route: 048
  2. PREMARIN [Concomitant]
  3. ATENOLOL [Concomitant]
  4. NAPROSYN [Concomitant]
  5. MACRODANTIN [Concomitant]
  6. MSM [Concomitant]
  7. CALCIUM D SAUTER [Concomitant]
  8. ASPIRIN [Concomitant]
  9. GUAIFENESIN [Concomitant]
  10. ZYRTEC [Concomitant]
  11. QUININE SULFATE [Concomitant]
  12. BENADRYL ^ACHE^ [Concomitant]
  13. COZAAR [Concomitant]
  14. ELOCON [Concomitant]

REACTIONS (7)
  - BACK PAIN [None]
  - CHILLS [None]
  - CHROMATURIA [None]
  - HEPATIC ENZYME INCREASED [None]
  - MYALGIA [None]
  - PAIN [None]
  - RASH MACULAR [None]
